FAERS Safety Report 7319119-0 (Version None)
Quarter: 2011Q1

REPORT INFORMATION
  Report Type: 
  Country: None (occurrence: None)
  Receive Date: 20110228
  Receipt Date: 20110214
  Transmission Date: 20110831
  Serious: Yes (Other)
  Sender: FDA-Public Use
  Company Number: PHHY2009JP18411

PATIENT
  Sex: Male

DRUGS (4)
  1. TASIGNA [Suspect]
     Indication: CHRONIC MYELOID LEUKAEMIA
     Dosage: 400 MG DAILY
     Route: 048
     Dates: start: 20090424, end: 20090623
  2. TASIGNA [Suspect]
     Dosage: 800  MG DAILY
     Route: 048
     Dates: start: 20090624, end: 20091111
  3. TASIGNA [Suspect]
     Dosage: 400 MG DAILY
     Route: 048
     Dates: start: 20100201, end: 20100428
  4. TASIGNA [Suspect]
     Dosage: 800  MG DAILY
     Route: 048
     Dates: start: 20091221, end: 20100118

REACTIONS (3)
  - BLOOD CREATINE PHOSPHOKINASE INCREASED [None]
  - MYALGIA [None]
  - PYREXIA [None]
